FAERS Safety Report 7424731-4 (Version None)
Quarter: 2011Q2

REPORT INFORMATION
  Report Type: 
  Country: None (occurrence: None)
  Receive Date: 20110419
  Receipt Date: 20110415
  Transmission Date: 20111010
  Serious: Yes (Other)
  Sender: FDA-Public Use
  Company Number: BR-PFIZER INC-2011083181

PATIENT
  Age: 54 Year
  Sex: Female
  Weight: 76.9 kg

DRUGS (5)
  1. CHAMPIX [Suspect]
     Dosage: 1 MG, 2X/DAY (1 MG EVERY 12 HOURS)
     Route: 048
  2. NEXIUM [Concomitant]
     Indication: GASTRITIS PROPHYLAXIS
     Dosage: UNK
  3. SYNTHROID [Concomitant]
     Indication: HYPOTHYROIDISM
     Dosage: UNK
  4. PANTOGAR [Concomitant]
     Indication: ALOPECIA
     Dosage: UNK
  5. CHAMPIX [Suspect]
     Indication: TOBACCO USER
     Dosage: UNK
     Route: 048
     Dates: start: 20110317

REACTIONS (3)
  - HEPATIC PAIN [None]
  - OESOPHAGEAL PAIN [None]
  - DYSPEPSIA [None]
